FAERS Safety Report 24411918 (Version 1)
Quarter: 2024Q4

REPORT INFORMATION
  Report Type: Spontaneous
  Country: US (occurrence: US)
  Receive Date: 20241008
  Receipt Date: 20241008
  Transmission Date: 20250115
  Serious: No
  Sender: ROCHE
  Company Number: US-ROCHE-10000097738

PATIENT
  Sex: Male

DRUGS (1)
  1. ACTEMRA [Suspect]
     Active Substance: TOCILIZUMAB
     Indication: Giant cell arteritis
     Dosage: DOSE : 1 PEN
     Route: 058
     Dates: start: 202407

REACTIONS (4)
  - Skin discolouration [Unknown]
  - Confusional state [Unknown]
  - Macule [Unknown]
  - Contusion [Unknown]
